FAERS Safety Report 5970248-3 (Version None)
Quarter: 2008Q4

REPORT INFORMATION
  Report Type: 
  Country: None (occurrence: None)
  Receive Date: 20081126
  Receipt Date: 20081118
  Transmission Date: 20090506
  Serious: Yes (Other)
  Sender: FDA-Public Use
  Company Number: GB-PFIZER INC-2008098309

PATIENT
  Age: 45 Year
  Sex: Female
  Weight: 79 kg

DRUGS (2)
  1. CHAMPIX [Suspect]
     Indication: SMOKING CESSATION THERAPY
     Route: 048
     Dates: start: 20080929, end: 20081013
  2. PROPRANOLOL [Concomitant]
     Route: 048
     Dates: start: 20070921

REACTIONS (4)
  - DEPRESSION [None]
  - IRRITABILITY [None]
  - LETHARGY [None]
  - SENSATION OF HEAVINESS [None]
